FAERS Safety Report 18268043 (Version 1)
Quarter: 2020Q3

REPORT INFORMATION
  Report Type: Spontaneous
  Country: US (occurrence: US)
  Receive Date: 20200915
  Receipt Date: 20200915
  Transmission Date: 20201103
  Serious: No
  Sender: FDA-Public Use
  Company Number: US-ASTELLAS-2020US029620

PATIENT
  Age: 82 Year
  Sex: Male

DRUGS (1)
  1. XTANDI [Suspect]
     Active Substance: ENZALUTAMIDE
     Indication: PRODUCT USED FOR UNKNOWN INDICATION
     Route: 048
     Dates: start: 20200818

REACTIONS (6)
  - Wrong technique in product usage process [Unknown]
  - Oral discomfort [Unknown]
  - Underdose [Unknown]
  - Inappropriate schedule of product administration [Unknown]
  - Throat irritation [Unknown]
  - Product use complaint [Unknown]

NARRATIVE: CASE EVENT DATE: 20200818
